FAERS Safety Report 10803447 (Version 1)
Quarter: 2015Q1

REPORT INFORMATION
  Report Type: Spontaneous
  Country: DE (occurrence: DE)
  Receive Date: 20150217
  Receipt Date: 20150217
  Transmission Date: 20150721
  Serious: Yes (Other)
  Sender: FDA-Public Use
  Company Number: DE-TEVA-539913GER

PATIENT
  Age: 66 Year
  Sex: Female

DRUGS (1)
  1. DOXORUBICINHYDROCHLORID TEVA 2 MG/ML KONZENTRAT ZUR HERSTELLUNG EINER [Suspect]
     Active Substance: DOXORUBICIN HYDROCHLORIDE
     Indication: LYMPHOMA
     Route: 042
     Dates: start: 201412

REACTIONS (2)
  - Application site necrosis [Not Recovered/Not Resolved]
  - Infusion site extravasation [Not Recovered/Not Resolved]
